FAERS Safety Report 21259721 (Version 1)
Quarter: 2022Q3

REPORT INFORMATION
  Report Type: Spontaneous
  Country: DK (occurrence: DK)
  Receive Date: 20220826
  Receipt Date: 20220826
  Transmission Date: 20221027
  Serious: Yes (Hospitalization, Other)
  Sender: FDA-Public Use
  Company Number: None

PATIENT
  Age: 44 Year
  Sex: Male

DRUGS (26)
  1. DEPO-MEDROL [Suspect]
     Active Substance: METHYLPREDNISOLONE ACETATE
     Indication: Joint swelling
     Dosage: 80 MG
     Dates: start: 20220801, end: 20220801
  2. METOPROLOL SUCCINATE [Concomitant]
     Active Substance: METOPROLOL SUCCINATE
     Indication: Hypertension
     Dosage: UNK
     Dates: start: 20191001
  3. FRAGMIN [Concomitant]
     Active Substance: DALTEPARIN SODIUM
     Indication: Haemodialysis
     Dosage: UNK
     Dates: start: 20210817
  4. GANGIDEN [Concomitant]
     Indication: Constipation
     Dosage: UNK
     Dates: start: 20191219
  5. MOXONAT [Concomitant]
     Indication: Hypertension
     Dosage: UNK
     Dates: start: 20201009
  6. SEMGLEE [Concomitant]
     Indication: Type 1 diabetes mellitus
     Dosage: UNK
     Dates: start: 20210507
  7. AMLODIPINE [Concomitant]
     Active Substance: AMLODIPINE BESYLATE
     Indication: Hypertension
     Dosage: UNK
     Dates: start: 20170126
  8. FOLIC ACID [Concomitant]
     Active Substance: FOLIC ACID
     Indication: Vitamin supplementation
     Dosage: UNK
     Dates: start: 20200915
  9. AMIODARONE HYDROCHLORIDE [Concomitant]
     Active Substance: AMIODARONE HYDROCHLORIDE
     Indication: Atrial fibrillation
     Dosage: UNK
     Dates: start: 20210723
  10. VENOFER [Concomitant]
     Active Substance: IRON SUCROSE
     Indication: Iron deficiency
     Dosage: UNK
     Dates: start: 20211203
  11. ZINC [Concomitant]
     Active Substance: ZINC
     Indication: Zinc deficiency
     Dosage: UNK
     Dates: start: 20201216
  12. WARFARIN SODIUM [Concomitant]
     Active Substance: WARFARIN SODIUM
     Indication: Anticoagulant therapy
     Dosage: UNK
     Dates: start: 20211119
  13. CREON [Concomitant]
     Active Substance: PANCRELIPASE AMYLASE\PANCRELIPASE LIPASE\PANCRELIPASE PROTEASE
     Indication: Enzyme abnormality
     Dosage: UNK
     Dates: start: 20200228
  14. OMEPRAZOLE [Concomitant]
     Active Substance: OMEPRAZOLE
     Indication: Peptic ulcer
     Dosage: UNK
     Dates: start: 20131107
  15. CALCIUM\VITAMIN D [Concomitant]
     Active Substance: CALCIUM\VITAMIN D
     Indication: Mineral supplementation
     Dosage: UNK
     Dates: start: 20200928
  16. APOVIT B COMBIN [Concomitant]
     Dosage: UNK
     Dates: start: 20200928
  17. ARANESP [Concomitant]
     Active Substance: DARBEPOETIN ALFA
     Indication: Nephrogenic anaemia
     Dosage: UNK
     Dates: start: 20211109
  18. SODIUM PICOSULFATE [Concomitant]
     Active Substance: SODIUM PICOSULFATE
     Indication: Constipation
     Dosage: UNK
     Dates: start: 20211227
  19. DULOXETINE HYDROCHLORIDE [Concomitant]
     Active Substance: DULOXETINE HYDROCHLORIDE
     Indication: Neuralgia
     Dosage: UNK
     Dates: start: 20210102
  20. MIRTAZAPINE [Concomitant]
     Active Substance: MIRTAZAPINE
     Indication: Sedative therapy
     Dosage: UNK
     Dates: start: 20200219
  21. ALFACALCIDOL ORIFARM [Concomitant]
     Indication: Calcium metabolism disorder
     Dosage: UNK
     Dates: start: 20220311
  22. OXYCODONE HYDROCHLORIDE [Concomitant]
     Active Substance: OXYCODONE HYDROCHLORIDE
     Indication: Pain
     Dosage: UNK
     Dates: start: 20210927
  23. INSULIN ASPART [Concomitant]
     Active Substance: INSULIN ASPART
     Indication: Type 1 diabetes mellitus
     Dosage: UNK
     Dates: start: 20210531
  24. LEVOTHYROXINE [Concomitant]
     Active Substance: LEVOTHYROXINE
     Indication: Hypothyroidism
     Dosage: UNK
     Dates: start: 20210923
  25. MORFIN ABCUR [Concomitant]
     Indication: Procedural pain
     Dosage: UNK
     Dates: start: 20211111
  26. FUROSEMID-RATIOPHARM [FUROSEMIDE] [Concomitant]
     Indication: Diuretic therapy
     Dosage: UNK
     Dates: start: 20220715

REACTIONS (4)
  - Diabetic ketoacidosis [Recovered/Resolved]
  - Diabetes mellitus inadequate control [Unknown]
  - Confusional state [Unknown]
  - Metabolic acidosis [Recovered/Resolved]

NARRATIVE: CASE EVENT DATE: 20220801
